FAERS Safety Report 10077572 (Version 2)
Quarter: 2014Q2

REPORT INFORMATION
  Report Type: Spontaneous
  Country: US (occurrence: US)
  Receive Date: 20140414
  Receipt Date: 20140414
  Transmission Date: 20141212
  Serious: No
  Sender: FDA-Public Use
  Company Number: US-BANPHARM-20131844

PATIENT
  Age: 78 Year
  Sex: Female
  Weight: 57.15 kg

DRUGS (13)
  1. ALEVE LIQUID GELS 220 MG [Suspect]
     Indication: ARTHRITIS
     Dosage: 1 DF, QID,
     Route: 048
     Dates: start: 20131017
  2. ALEVE CAPLETS [Suspect]
     Indication: ARTHRITIS
     Dosage: 1 DF, QID,
     Dates: start: 2010, end: 20131016
  3. ECOTRIN 81 MG [Concomitant]
  4. COZAAR [Concomitant]
  5. VITAMIN C [Concomitant]
  6. VITAMIN D [Concomitant]
  7. SIMVASTATIN [Concomitant]
  8. NIASPAN [Concomitant]
  9. TOVIAZ [Concomitant]
  10. CALCIUM [Concomitant]
  11. MAGNESIUM [Concomitant]
  12. FISH OIL [Concomitant]
  13. EYE DROPS [Concomitant]

REACTIONS (2)
  - Drug ineffective [Unknown]
  - Incorrect dose administered [Unknown]
